FAERS Safety Report 20838146 (Version 1)
Quarter: 2022Q2

REPORT INFORMATION
  Report Type: Report from Study
  Country: US (occurrence: US)
  Receive Date: 20220517
  Receipt Date: 20220517
  Transmission Date: 20220720
  Serious: Yes (Other)
  Sender: FDA-Public Use
  Company Number: US-ASTELLAS-2018US051066

PATIENT
  Age: 92 Year
  Sex: Female

DRUGS (4)
  1. MIRABEGRON [Suspect]
     Active Substance: MIRABEGRON
     Indication: Urinary incontinence
     Dosage: UNK, UNKNOWN FREQ.
     Route: 065
  2. MIRABEGRON [Suspect]
     Active Substance: MIRABEGRON
     Indication: Pollakiuria
     Dosage: UNK, UNKNOWN FREQ.
     Route: 065
     Dates: start: 20190404
  3. MIRABEGRON [Suspect]
     Active Substance: MIRABEGRON
     Route: 048
  4. MIRABEGRON [Suspect]
     Active Substance: MIRABEGRON
     Route: 048

REACTIONS (4)
  - Hallucination [Unknown]
  - Product availability issue [Unknown]
  - Off label use [Unknown]
  - Inappropriate schedule of product administration [Unknown]

NARRATIVE: CASE EVENT DATE: 20191001
